FAERS Safety Report 12179473 (Version 1)
Quarter: 2016Q1

REPORT INFORMATION
  Report Type: Spontaneous
  Country: US (occurrence: US)
  Receive Date: 20160315
  Receipt Date: 20160315
  Transmission Date: 20160526
  Serious: No
  Sender: FDA-Public Use
  Company Number: US-ASTRAZENECA-2016SE25727

PATIENT
  Sex: Female

DRUGS (1)
  1. FASLODEX [Suspect]
     Active Substance: FULVESTRANT
     Indication: OESTROGEN RECEPTOR POSITIVE BREAST CANCER
     Route: 030

REACTIONS (4)
  - Mobility decreased [Unknown]
  - Inflammation [Unknown]
  - Scar [Unknown]
  - Pain [Unknown]
